FAERS Safety Report 25300505 (Version 1)
Quarter: 2025Q2

REPORT INFORMATION
  Report Type: Spontaneous
  Country: US (occurrence: US)
  Receive Date: 20250512
  Receipt Date: 20250512
  Transmission Date: 20250716
  Serious: Yes (Death)
  Sender: DOMPE FARMACEUTICI
  Company Number: US-FARMAPROD-202505-1454

PATIENT
  Age: 83 Year
  Sex: Male

DRUGS (16)
  1. OXERVATE [Suspect]
     Active Substance: CENEGERMIN-BKBJ
     Indication: Neurotrophic keratopathy
     Route: 047
     Dates: start: 20250415
  2. ELREXFIO [Concomitant]
     Active Substance: ELRANATAMAB-BCMM
  3. REFRESH TEARS [Concomitant]
     Active Substance: CARBOXYMETHYLCELLULOSE SODIUM
  4. OFLOXACIN [Concomitant]
     Active Substance: OFLOXACIN
  5. VITAMIN C [Concomitant]
     Active Substance: ASCORBIC ACID
  6. ELDERBERRY IMMUNE HEALTH [Concomitant]
  7. ZINC [Concomitant]
     Active Substance: ZINC
  8. OXYCODONE AND ACETAMINOPHEN [Concomitant]
     Active Substance: ACETAMINOPHEN\OXYCODONE HYDROCHLORIDE
  9. DIAZEPAM [Concomitant]
     Active Substance: DIAZEPAM
  10. SODIUM BICARBONATE [Concomitant]
     Active Substance: SODIUM BICARBONATE
  11. OPIUM TINCTURE [Concomitant]
     Active Substance: MORPHINE
  12. CALCIUM ACETATE [Concomitant]
     Active Substance: CALCIUM ACETATE
  13. ATOVAQUONE [Concomitant]
     Active Substance: ATOVAQUONE
  14. ELIQUIS [Concomitant]
     Active Substance: APIXABAN
  15. ALLOPURINOL [Concomitant]
     Active Substance: ALLOPURINOL
  16. ACYCLOVIR [Concomitant]
     Active Substance: ACYCLOVIR

REACTIONS (1)
  - Death [Fatal]

NARRATIVE: CASE EVENT DATE: 20250429
